FAERS Safety Report 9033898 (Version 2)
Quarter: 2013Q2

REPORT INFORMATION
  Report Type: Spontaneous
  Country: US (occurrence: US)
  Receive Date: 20130128
  Receipt Date: 20130418
  Transmission Date: 20140414
  Serious: Yes (Hospitalization)
  Sender: FDA-Public Use
  Company Number: US-AMGEN-USASP2012068225

PATIENT
  Age: 79 Year
  Sex: Male

DRUGS (1)
  1. ENBREL [Suspect]
     Indication: RHEUMATOID ARTHRITIS
     Dosage: 50 MG, QWK
     Dates: start: 20041010, end: 201205

REACTIONS (6)
  - Cerebral haemorrhage [Recovered/Resolved]
  - Staphylococcal infection [Recovered/Resolved]
  - Knee arthroplasty [Recovered/Resolved]
  - Condition aggravated [Not Recovered/Not Resolved]
  - Ingrowing nail [Recovered/Resolved]
  - Infection [Not Recovered/Not Resolved]
